FAERS Safety Report 9369382 (Version 2)
Quarter: 2013Q4

REPORT INFORMATION
  Report Type: Spontaneous
  Country: DK (occurrence: DK)
  Receive Date: 20130626
  Receipt Date: 20131230
  Transmission Date: 20140711
  Serious: Yes (Hospitalization)
  Sender: FDA-Public Use
  Company Number: DK-AMGEN-DNKSP2013044172

PATIENT
  Age: 73 Year
  Sex: Male

DRUGS (3)
  1. XGEVA [Suspect]
     Indication: METASTASES TO BONE
     Dosage: 120 MG, Q4WK
     Route: 065
     Dates: start: 201210
  2. ZOMETA [Suspect]
     Indication: METASTASES TO BONE
     Dosage: 4 MG/100ML, UNK
     Route: 065
     Dates: start: 200710
  3. PREDNISOLONE [Concomitant]

REACTIONS (2)
  - Jaw operation [Unknown]
  - Osteonecrosis of jaw [Recovered/Resolved]
